FAERS Safety Report 24847139 (Version 2)
Quarter: 2025Q1

REPORT INFORMATION
  Report Type: Report from Study
  Country: BR (occurrence: BR)
  Receive Date: 20250115
  Receipt Date: 20250328
  Transmission Date: 20250409
  Serious: Yes (Hospitalization, Other)
  Sender: UCB
  Company Number: BR-UCBSA-2024066091

PATIENT
  Age: 65 Year
  Sex: Female
  Weight: 94 kg

DRUGS (3)
  1. BIMEKIZUMAB [Suspect]
     Active Substance: BIMEKIZUMAB
     Indication: Psoriasis
     Dosage: 320 MILLIGRAM, EV 4 WEEKS
     Route: 058
     Dates: start: 20241203
  2. VICKS [CAMPHOR;MENTHOL] [Concomitant]
     Indication: Cough
     Route: 048
     Dates: start: 20241212
  3. ACETYLCYSTEINE [Concomitant]
     Active Substance: ACETYLCYSTEINE
     Indication: Cough
     Route: 048
     Dates: start: 20241212

REACTIONS (5)
  - Hypersensitivity [Recovering/Resolving]
  - Pneumonia [Unknown]
  - Influenza like illness [Not Recovered/Not Resolved]
  - Psoriasis [Recovering/Resolving]
  - Therapeutic response decreased [Unknown]

NARRATIVE: CASE EVENT DATE: 20241201
